FAERS Safety Report 14782588 (Version 1)
Quarter: 2018Q2

REPORT INFORMATION
  Report Type: Report from Study
  Country: None (occurrence: BR)
  Receive Date: 20180420
  Receipt Date: 20180420
  Transmission Date: 20180711
  Serious: Yes (Hospitalization, Other)
  Sender: FDA-Public Use
  Company Number: BR-ABBVIE-18K-020-2325541-00

PATIENT
  Age: 77 Year
  Sex: Male
  Weight: 59 kg

DRUGS (1)
  1. HUMIRA [Suspect]
     Active Substance: ADALIMUMAB
     Indication: ANKYLOSING SPONDYLITIS
     Route: 058
     Dates: start: 20160629, end: 20180308

REACTIONS (8)
  - Pneumonitis [Unknown]
  - Influenza [Not Recovered/Not Resolved]
  - Dysphonia [Recovering/Resolving]
  - Hypopnoea [Unknown]
  - Pneumonia [Recovering/Resolving]
  - Feeding disorder [Recovered/Resolved]
  - Asthenia [Recovering/Resolving]
  - Pulmonary function test abnormal [Unknown]

NARRATIVE: CASE EVENT DATE: 201801
